FAERS Safety Report 8764297 (Version 2)
Quarter: 2012Q4

REPORT INFORMATION
  Report Type: 
  Country: US (occurrence: US)
  Receive Date: 20120831
  Receipt Date: 20120913
  Transmission Date: 20130627
  Serious: Yes (Hospitalization, Disabling, Other)
  Sender: FDA-Public Use
  Company Number: US-009507513-1107USA03461

PATIENT

DRUGS (6)
  1. FOSAMAX [Suspect]
     Indication: OSTEOPOROSIS
     Dosage: 10 mg, UNK
     Route: 048
     Dates: start: 19980314, end: 199809
  2. FOSAMAX [Suspect]
     Dosage: 70 mg, QW
     Route: 048
     Dates: start: 20020421, end: 20080304
  3. BONIVA [Suspect]
     Dosage: 150 mg, UNK
     Route: 048
     Dates: start: 20080304
  4. MK-9278 [Concomitant]
     Dosage: UNK UNK, qd
     Dates: start: 1997
  5. VITAMIN E [Concomitant]
     Dates: start: 1997, end: 2002
  6. EVISTA [Concomitant]
     Indication: OSTEOPOROSIS
     Dosage: 60 mg, qd
     Route: 048
     Dates: start: 19920101, end: 2007

REACTIONS (68)
  - Femur fracture [Not Recovered/Not Resolved]
  - Low turnover osteopathy [Not Recovered/Not Resolved]
  - Ulna fracture [Unknown]
  - Tibia fracture [Unknown]
  - Ovarian cancer [Unknown]
  - Metastatic neoplasm [Unknown]
  - Fall [Unknown]
  - Syncope [Unknown]
  - Fracture nonunion [Not Recovered/Not Resolved]
  - Loss of consciousness [Unknown]
  - Femur fracture [Unknown]
  - Femur fracture [Unknown]
  - Urinary tract infection [Unknown]
  - Appendix disorder [Unknown]
  - Radius fracture [Unknown]
  - Femur fracture [Not Recovered/Not Resolved]
  - Blood cholesterol increased [Unknown]
  - Anxiety [Unknown]
  - Fungal infection [Unknown]
  - Wrist fracture [Unknown]
  - Hypothyroidism [Not Recovered/Not Resolved]
  - Hypoparathyroidism [Unknown]
  - Fall [Unknown]
  - Device failure [Unknown]
  - Uterine leiomyoma [Not Recovered/Not Resolved]
  - Intervertebral disc degeneration [Not Recovered/Not Resolved]
  - Kyphosis [Not Recovered/Not Resolved]
  - Endometrial hyperplasia [Not Recovered/Not Resolved]
  - Ovarian germ cell teratoma benign [Not Recovered/Not Resolved]
  - Bursitis [Unknown]
  - Blepharospasm [Unknown]
  - Thrombosis [Unknown]
  - Phlebitis [Unknown]
  - Upper limb fracture [Unknown]
  - Hyperlipidaemia [Not Recovered/Not Resolved]
  - Depression [Recovered/Resolved]
  - Blepharospasm [Unknown]
  - Fall [Unknown]
  - Change of bowel habit [Unknown]
  - Insomnia [Unknown]
  - Fatigue [Unknown]
  - Fall [Unknown]
  - Deep vein thrombosis [Unknown]
  - Colitis [Unknown]
  - Hepatic cyst [Unknown]
  - Renal cyst [Unknown]
  - Spinal osteoarthritis [Unknown]
  - Ear discomfort [Unknown]
  - Ecchymosis [Unknown]
  - Conjunctivitis infective [Unknown]
  - Joint injury [Unknown]
  - Muscle tightness [Unknown]
  - Tendon disorder [Unknown]
  - Lymphoedema [Unknown]
  - Deep vein thrombosis [Unknown]
  - Osteoarthritis [Unknown]
  - Enthesopathy [Unknown]
  - Vascular calcification [Unknown]
  - Fall [Unknown]
  - Neuropathy peripheral [Unknown]
  - Oedema peripheral [Not Recovered/Not Resolved]
  - Pain in extremity [Unknown]
  - Drug hypersensitivity [Unknown]
  - Musculoskeletal pain [Unknown]
  - Rash [Unknown]
  - Arthralgia [Unknown]
  - Arthralgia [Unknown]
  - Arthralgia [Unknown]
